FAERS Safety Report 15557858 (Version 2)
Quarter: 2018Q4

REPORT INFORMATION
  Report Type: Spontaneous
  Country: AU (occurrence: AU)
  Receive Date: 20181027
  Receipt Date: 20181028
  Transmission Date: 20190205
  Serious: Yes (Death, Other)
  Sender: FDA-Public Use
  Company Number: AU-009507513-0805AUS00095

PATIENT
  Age: 71 Year
  Sex: Female
  Weight: 60 kg

DRUGS (13)
  1. EZETROL [Suspect]
     Active Substance: EZETIMIBE
     Indication: HYPERCHOLESTEROLAEMIA
     Dosage: 10 MILLIGRAM, QD
     Route: 048
     Dates: end: 20070731
  2. CRESTOR [Suspect]
     Active Substance: ROSUVASTATIN CALCIUM
     Indication: HYPERCHOLESTEROLAEMIA
     Dosage: 40 MILLIGRAM, QD
     Route: 048
     Dates: start: 20061215, end: 20070731
  3. ASPIRIN. [Concomitant]
     Active Substance: ASPIRIN
     Indication: THROMBOSIS PROPHYLAXIS
     Dosage: 100 MG, UNK
     Route: 048
     Dates: end: 20070731
  4. NORVASC [Concomitant]
     Active Substance: AMLODIPINE BESYLATE
     Dosage: DOSE INCREASED
     Route: 048
     Dates: start: 20070815
  5. IKOREL [Concomitant]
     Active Substance: NICORANDIL
     Dosage: DOSE INCREASED
     Route: 048
     Dates: start: 20070815
  6. FERRO-GRADUMET [Concomitant]
     Active Substance: FERROUS SULFATE
     Indication: ANAEMIA
     Dosage: UNK
     Route: 048
     Dates: end: 20070820
  7. IKOREL [Concomitant]
     Active Substance: NICORANDIL
     Dosage: UNK
     Route: 048
     Dates: start: 20070811
  8. IKOREL [Concomitant]
     Active Substance: NICORANDIL
     Indication: MYOCARDIAL ISCHAEMIA
     Dosage: 20 MILLIGRAM, QD
     Route: 048
     Dates: start: 20070807
  9. IMDUR [Concomitant]
     Active Substance: ISOSORBIDE MONONITRATE
     Indication: MYOCARDIAL ISCHAEMIA
     Dosage: 30 MILLIGRAM, QD
     Route: 048
     Dates: end: 20070731
  10. NORVASC [Concomitant]
     Active Substance: AMLODIPINE BESYLATE
     Dosage: 10 MILLIGRAM, QD
     Route: 048
     Dates: end: 20070731
  11. AMIODARONE HYDROCHLORIDE. [Concomitant]
     Active Substance: AMIODARONE HYDROCHLORIDE
     Dosage: 400 MILLIGRAM
     Route: 048
  12. NORVASC [Concomitant]
     Active Substance: AMLODIPINE BESYLATE
     Indication: MYOCARDIAL ISCHAEMIA
     Dosage: UNK
     Route: 048
     Dates: start: 20070810
  13. SPIRIVA [Concomitant]
     Active Substance: TIOTROPIUM BROMIDE MONOHYDRATE

REACTIONS (11)
  - Chest pain [Fatal]
  - Dyspnoea [Fatal]
  - Acute kidney injury [Fatal]
  - Haemoglobin decreased [Fatal]
  - Pneumonia [Fatal]
  - Rhabdomyolysis [Fatal]
  - Atrial fibrillation [Fatal]
  - Haematemesis [Fatal]
  - Melaena [Fatal]
  - Lethargy [Fatal]
  - Respiratory failure [Fatal]

NARRATIVE: CASE EVENT DATE: 2007
